FAERS Safety Report 6829033-2 (Version None)
Quarter: 2010Q3

REPORT INFORMATION
  Report Type: 
  Country: None (occurrence: None)
  Receive Date: 20100709
  Receipt Date: 20070227
  Transmission Date: 20110219
  Serious: No
  Sender: FDA-Public Use
  Company Number: US-PFIZER INC-2007016150

PATIENT
  Sex: Female
  Weight: 63.5 kg

DRUGS (4)
  1. CHANTIX [Suspect]
     Indication: SMOKING CESSATION THERAPY
     Route: 048
     Dates: start: 20070201, end: 20070223
  2. XANAX [Concomitant]
  3. VITAMINS [Concomitant]
  4. CALCIUM CARBONATE [Concomitant]

REACTIONS (2)
  - NAUSEA [None]
  - VOMITING [None]
